FAERS Safety Report 9499674 (Version 1)
Quarter: 2013Q3

REPORT INFORMATION
  Report Type: Report from Study
  Country: DE (occurrence: DE)
  Receive Date: 20130905
  Receipt Date: 20130905
  Transmission Date: 20140515
  Serious: Yes (Other)
  Sender: FDA-Public Use
  Company Number: DE-009507513-1309DEU000787

PATIENT
  Age: 54 Year
  Sex: Female

DRUGS (5)
  1. BOCEPREVIR [Suspect]
     Indication: CHRONIC HEPATITIS C
     Dosage: 800 MG, TID
     Route: 065
  2. REBETOL [Suspect]
     Indication: CHRONIC HEPATITIS C
     Dosage: 1200 MG, QD
     Route: 065
  3. REBETOL [Suspect]
     Dosage: 1000 MG, QD
     Route: 065
  4. REBETOL [Suspect]
     Dosage: 400 MG, QD
     Route: 065
  5. PEGASYS [Suspect]
     Indication: CHRONIC HEPATITIS C
     Dosage: 180 MICROGRAM, QW
     Route: 065

REACTIONS (2)
  - Pancytopenia [Unknown]
  - Anaemia [Unknown]
